FAERS Safety Report 7198783-3 (Version None)
Quarter: 2010Q4

REPORT INFORMATION
  Report Type: 
  Country: None (occurrence: None)
  Receive Date: 20101227
  Receipt Date: 20100528
  Transmission Date: 20110411
  Serious: No
  Sender: FDA-Public Use
  Company Number: US-ABBOTT-10P-163-0648574-00

PATIENT
  Sex: Male
  Weight: 93.07 kg

DRUGS (1)
  1. LUPRON DEPOT [Suspect]
     Indication: PROSTATE CANCER
     Dates: start: 20100201

REACTIONS (2)
  - EJACULATION DISORDER [None]
  - SEXUAL DYSFUNCTION [None]
